FAERS Safety Report 19245768 (Version 1)
Quarter: 2021Q2

REPORT INFORMATION
  Report Type: Spontaneous
  Country: US (occurrence: US)
  Receive Date: 20210512
  Receipt Date: 20210512
  Transmission Date: 20210717
  Serious: Yes (Hospitalization)
  Sender: FDA-Public Use
  Company Number: US-COEPTIS PHARMACEUTICALS, INC.-COE-2021-000046

PATIENT
  Age: 15 Year

DRUGS (5)
  1. EFFEXOR [Suspect]
     Active Substance: VENLAFAXINE HYDROCHLORIDE
  2. ALLOPURINOL. [Suspect]
     Active Substance: ALLOPURINOL
  3. AMLODIPINE [Suspect]
     Active Substance: AMLODIPINE BESYLATE
  4. TRAZODONE [Suspect]
     Active Substance: TRAZODONE HYDROCHLORIDE
  5. BENZONATATE. [Suspect]
     Active Substance: BENZONATATE

REACTIONS (6)
  - Acute respiratory distress syndrome [Unknown]
  - Acute kidney injury [Unknown]
  - Shock [Unknown]
  - Metabolic acidosis [Unknown]
  - Hypoglycaemia [Unknown]
  - Overdose [Unknown]
